FAERS Safety Report 8719482 (Version 3)
Quarter: 2012Q4

REPORT INFORMATION
  Report Type: 
  Country: DE (occurrence: DE)
  Receive Date: 20120813
  Receipt Date: 20121003
  Transmission Date: 20130627
  Serious: Yes (Hospitalization)
  Sender: FDA-Public Use
  Company Number: DE-ELI_LILLY_AND_COMPANY-DE201208000081

PATIENT
  Sex: Male

DRUGS (7)
  1. CYMBALTA [Suspect]
     Indication: DEPRESSION
     Dosage: 30 mg, UNK
  2. CYMBALTA [Suspect]
     Dosage: 45 mg, qd
  3. CYMBALTA [Suspect]
     Dosage: 60 mg, qd
     Route: 065
     Dates: start: 20120418, end: 201205
  4. CYMBALTA [Suspect]
     Dosage: 30 mg, unknown
     Route: 065
     Dates: start: 201205
  5. METOPROLOL [Concomitant]
     Dosage: 47.5 mg, unknown
  6. METOPROLOL [Concomitant]
     Dosage: 23.75 mg, unknown
  7. ASS [Concomitant]
     Dosage: 100 mg, unknown

REACTIONS (5)
  - Pain [Unknown]
  - Hypoaesthesia [Unknown]
  - Paraesthesia [Unknown]
  - Arthralgia [Unknown]
  - Extrasystoles [Recovering/Resolving]
